FAERS Safety Report 9697138 (Version 1)
Quarter: 2013Q4

REPORT INFORMATION
  Report Type: Spontaneous
  Country: US (occurrence: US)
  Receive Date: 20131120
  Receipt Date: 20131120
  Transmission Date: 20140711
  Serious: No
  Sender: FDA-Public Use
  Company Number: US-BIOGENIDEC-2013BI108855

PATIENT
  Age: 24 Year
  Sex: Male

DRUGS (3)
  1. TYSABRI [Suspect]
     Indication: MULTIPLE SCLEROSIS
     Route: 042
     Dates: start: 20101221
  2. SOLUMEDROL [Concomitant]
     Indication: PREMEDICATION
  3. SOLUMEDROL [Concomitant]

REACTIONS (3)
  - Burning sensation [Recovered/Resolved]
  - Feeling abnormal [Recovered/Resolved]
  - Dyspnoea [Recovered/Resolved]
